FAERS Safety Report 9914388 (Version 3)
Quarter: 2015Q3

REPORT INFORMATION
  Report Type: Spontaneous
  Country: US (occurrence: US)
  Receive Date: 20140220
  Receipt Date: 20150722
  Transmission Date: 20151125
  Serious: No
  Sender: FDA-Public Use
  Company Number: US-GILEAD-2011-0043170

PATIENT
  Age: 44 Year
  Sex: Male

DRUGS (3)
  1. ATRIPLA [Suspect]
     Active Substance: EFAVIRENZ\EMTRICITABINE\TENOFOVIR DISOPROXIL FUMARATE
     Indication: HIV INFECTION
  2. LOPID [Concomitant]
     Active Substance: GEMFIBROZIL
  3. TRICOR [Concomitant]
     Active Substance: FENOFIBRATE

REACTIONS (2)
  - Blood triglycerides increased [Unknown]
  - Myalgia [Recovered/Resolved]
